FAERS Safety Report 8545220-X (Version None)
Quarter: 2012Q3

REPORT INFORMATION
  Report Type: 
  Country: None (occurrence: None)
  Receive Date: 20120727
  Receipt Date: 20120525
  Transmission Date: 20120928
  Serious: No
  Sender: FDA-Public Use
  Company Number: US-009507513-2012SP023970

PATIENT

DRUGS (3)
  1. CLARITIN [Suspect]
     Indication: MEDICAL OBSERVATION
  2. CLARITIN [Suspect]
     Indication: UPPER RESPIRATORY TRACT CONGESTION
     Dosage: 10 MG, QAM
     Route: 048
     Dates: start: 20120416, end: 20120420
  3. CLARITIN [Suspect]
     Indication: RHINORRHOEA

REACTIONS (3)
  - NO THERAPEUTIC RESPONSE [None]
  - EXPIRED DRUG ADMINISTERED [None]
  - DRUG EFFECT DECREASED [None]
